FAERS Safety Report 6222653-8 (Version None)
Quarter: 2009Q2

REPORT INFORMATION
  Report Type: 
  Country: None (occurrence: None)
  Receive Date: 20090609
  Receipt Date: 20090609
  Transmission Date: 20091009
  Serious: Yes (Death)
  Sender: FDA-Public Use
  Company Number: None

PATIENT
  Age: 45 Year
  Sex: Female
  Weight: 47 kg

DRUGS (11)
  1. LOVENOX [Suspect]
     Dosage: 50 MG Q12H SQ  (LIFE LONG)
     Route: 058
  2. DILANTIN [Concomitant]
  3. XANAX [Concomitant]
  4. CLONAZEPAM [Concomitant]
  5. FLOVENT [Concomitant]
  6. SPIRIVA [Concomitant]
  7. PHENERGAN [Concomitant]
  8. TOPAMAX [Concomitant]
  9. HYDROMORPHONE [Concomitant]
  10. ENABLEX [Concomitant]
  11. METOPROLOL SUCCINATE [Concomitant]

REACTIONS (4)
  - FALL [None]
  - INTRACRANIAL HAEMATOMA [None]
  - NERVOUS SYSTEM DISORDER [None]
  - UNRESPONSIVE TO STIMULI [None]
